FAERS Safety Report 8327916-8 (Version None)
Quarter: 2012Q2

REPORT INFORMATION
  Report Type: 
  Country: None (occurrence: None)
  Receive Date: 20120502
  Receipt Date: 20120420
  Transmission Date: 20120825
  Serious: Yes (Hospitalization, Other)
  Sender: FDA-Public Use
  Company Number: US-RANBAXY-2012US-55899

PATIENT
  Sex: Male

DRUGS (4)
  1. CLARAVIS [Suspect]
     Indication: ACNE
     Route: 048
     Dates: start: 20061110, end: 20061210
  2. ISOTRETINOIN [Suspect]
     Dosage: UNK
     Route: 065
     Dates: start: 20070514, end: 20070624
  3. ISOTRETINOIN [Suspect]
     Indication: PRODUCT USED FOR UNKNOWN INDICATION
     Dosage: UNK
     Route: 048
     Dates: start: 20061214, end: 20070114
  4. CLARAVIS [Suspect]
     Dosage: UNK
     Route: 048
     Dates: start: 20070202, end: 20070423

REACTIONS (11)
  - GASTROINTESTINAL DISORDER [None]
  - COLITIS [None]
  - IRRITABLE BOWEL SYNDROME [None]
  - CROHN'S DISEASE [None]
  - RECTAL HAEMORRHAGE [None]
  - ANAEMIA [None]
  - ABDOMINAL PAIN [None]
  - GASTROINTESTINAL OEDEMA [None]
  - DIARRHOEA [None]
  - COLITIS ULCERATIVE [None]
  - INFLAMMATORY BOWEL DISEASE [None]
